FAERS Safety Report 25914440 (Version 1)
Quarter: 2025Q4

REPORT INFORMATION
  Report Type: Spontaneous
  Country: MX (occurrence: MX)
  Receive Date: 20251013
  Receipt Date: 20251013
  Transmission Date: 20260118
  Serious: Yes (Hospitalization, Other)
  Sender: BAYER HEALTHCARE PHARMACEUTICALS INC.
  Company Number: MX-BAYER-2025A129806

PATIENT
  Age: 58 Year
  Sex: Male

DRUGS (3)
  1. ULTRAVIST [Suspect]
     Active Substance: IOPROMIDE
     Indication: Computerised tomogram
     Dosage: 65 ML, INJECTION RATE OF 3 ML/S
     Dates: start: 20250818, end: 20250818
  2. ULTRAVIST [Suspect]
     Active Substance: IOPROMIDE
     Indication: Haemoptysis
  3. ULTRAVIST [Suspect]
     Active Substance: IOPROMIDE
     Indication: Squamous cell carcinoma of lung

REACTIONS (8)
  - Hypoventilation [None]
  - Loss of consciousness [Recovered/Resolved]
  - Gaze palsy [Recovered/Resolved]
  - Coma [Recovered/Resolved]
  - Dizziness [None]
  - Oxygen saturation decreased [Recovering/Resolving]
  - Mean arterial pressure decreased [None]
  - Heart rate increased [None]

NARRATIVE: CASE EVENT DATE: 20250818
